FAERS Safety Report 8814260 (Version 1)
Quarter: 2012Q4

REPORT INFORMATION
  Report Type: 
  Country: US (occurrence: US)
  Receive Date: 20120928
  Receipt Date: 20120928
  Transmission Date: 20130627
  Serious: Yes (Hospitalization, Other)
  Sender: FDA-Public Use
  Company Number: US-AMGEN-USASP2012061088

PATIENT
  Age: 30 Year
  Sex: Female

DRUGS (1)
  1. ENBREL [Suspect]
     Indication: PSORIASIS
     Dosage: 50 mg, qwk
     Dates: start: 20060823, end: 20111215

REACTIONS (3)
  - Haemorrhage in pregnancy [Recovered/Resolved]
  - Placenta praevia [Recovered/Resolved]
  - Uterine leiomyoma [Not Recovered/Not Resolved]
